FAERS Safety Report 18652088 (Version 1)
Quarter: 2020Q4

REPORT INFORMATION
  Report Type: Report from Study
  Country: CO (occurrence: CO)
  Receive Date: 20201222
  Receipt Date: 20201222
  Transmission Date: 20210114
  Serious: Yes (Death, Hospitalization)
  Sender: FDA-Public Use
  Company Number: CO-ASTRAZENECA-2020SF70486

PATIENT
  Age: 13581 Day
  Sex: Female

DRUGS (1)
  1. FASLODEX [Suspect]
     Active Substance: FULVESTRANT
     Indication: BREAST CANCER FEMALE
     Dosage: 2 SYRINGES 250 MG EACH ONE, 500 MG MONTHLY
     Route: 030
     Dates: start: 20190521, end: 20200807

REACTIONS (5)
  - Dehydration [Unknown]
  - Death [Fatal]
  - Pain [Unknown]
  - Hypotension [Unknown]
  - Asthenia [Unknown]

NARRATIVE: CASE EVENT DATE: 20200903
